FAERS Safety Report 17654907 (Version 1)
Quarter: 2020Q2

REPORT INFORMATION
  Report Type: Spontaneous
  Country: CA (occurrence: CA)
  Receive Date: 20200410
  Receipt Date: 20200410
  Transmission Date: 20200713
  Serious: Yes (Other)
  Sender: FDA-Public Use
  Company Number: CA-DRREDDYS-USA/CAN/20/0121708

PATIENT
  Sex: Female

DRUGS (6)
  1. ESTRADIOL. [Suspect]
     Active Substance: ESTRADIOL
     Indication: PROPHYLAXIS
     Route: 062
  2. ESTRADIOL. [Suspect]
     Active Substance: ESTRADIOL
     Route: 062
  3. PROGESTERONE CAPSULES [Suspect]
     Active Substance: PROGESTERONE
     Indication: MENOPAUSE
     Route: 048
  4. PROGESTERONE CAPSULES [Suspect]
     Active Substance: PROGESTERONE
     Indication: DEPRESSIVE SYMPTOM
  5. PROGESTERONE CAPSULES [Suspect]
     Active Substance: PROGESTERONE
     Indication: PROPHYLAXIS
     Route: 048
  6. ESTRADIOL. [Suspect]
     Active Substance: ESTRADIOL
     Indication: DEPRESSIVE SYMPTOM
     Route: 065

REACTIONS (4)
  - Product use in unapproved indication [Unknown]
  - Deep vein thrombosis [Unknown]
  - Product use issue [Unknown]
  - Off label use [Unknown]
